FAERS Safety Report 7092653-7 (Version None)
Quarter: 2010Q4

REPORT INFORMATION
  Report Type: 
  Country: None (occurrence: None)
  Receive Date: 20101110
  Receipt Date: 20101027
  Transmission Date: 20110411
  Serious: Yes (Other)
  Sender: FDA-Public Use
  Company Number: US-JNJFOC-20061004857

PATIENT
  Sex: Male

DRUGS (4)
  1. RISPERDAL [Suspect]
     Indication: SCHIZOPHRENIA, PARANOID TYPE
  2. COGENTIN [Suspect]
     Indication: ILL-DEFINED DISORDER
  3. ABILIFY [Suspect]
     Indication: ILL-DEFINED DISORDER
     Route: 048
  4. OLANZAPINE [Concomitant]
     Indication: SCHIZOPHRENIA, PARANOID TYPE
     Route: 048

REACTIONS (8)
  - DRY MOUTH [None]
  - EXTRAPYRAMIDAL DISORDER [None]
  - LIBIDO DECREASED [None]
  - MUSCULOSKELETAL STIFFNESS [None]
  - NASAL DRYNESS [None]
  - RETROGRADE EJACULATION [None]
  - TYPE 2 DIABETES MELLITUS [None]
  - WEIGHT INCREASED [None]
